FAERS Safety Report 8377659-X (Version None)
Quarter: 2012Q2

REPORT INFORMATION
  Report Type: 
  Country: None (occurrence: None)
  Receive Date: 20120522
  Receipt Date: 20120322
  Transmission Date: 20120825
  Serious: Yes (Other)
  Sender: FDA-Public Use
  Company Number: UA-MERCK-1204USA03483

PATIENT
  Age: 67 Year
  Sex: Male

DRUGS (2)
  1. ZIOPTAN [Suspect]
     Indication: OPEN ANGLE GLAUCOMA
     Route: 047
  2. TIMOLOL [Concomitant]
     Route: 047

REACTIONS (3)
  - CORNEAL DEGENERATION [None]
  - CORNEAL OEDEMA [None]
  - VISUAL FIELD DEFECT [None]
